FAERS Safety Report 7516001-0 (Version None)
Quarter: 2011Q2

REPORT INFORMATION
  Report Type: 
  Country: None (occurrence: None)
  Receive Date: 20110601
  Receipt Date: 20110509
  Transmission Date: 20111010
  Serious: Yes (Other)
  Sender: FDA-Public Use
  Company Number: US-BAYER-2010-009097

PATIENT
  Age: 19 Year
  Sex: Female
  Weight: 54 kg

DRUGS (12)
  1. YASMIN [Suspect]
     Indication: PRODUCT USED FOR UNKNOWN INDICATION
     Route: 048
  2. NAPROXEN SODIUM [Concomitant]
     Dosage: UNK
     Dates: start: 20070628
  3. NAPROXEN SODIUM [Concomitant]
     Dosage: UNK
     Dates: start: 20070328
  4. CIPROFLOXACIN HCL [Concomitant]
     Dosage: 500 MG, UNK
     Dates: start: 20070417
  5. BROMATANE DX [Concomitant]
     Dosage: UNK
     Dates: start: 20070613
  6. NAPROXEN SODIUM [Concomitant]
     Dosage: 550 MG, UNK
     Dates: start: 20061215
  7. CLARINEX [Concomitant]
     Dosage: 5 MG, UNK
     Dates: start: 20070620
  8. NAPROXEN SODIUM [Concomitant]
     Dosage: UNK
     Dates: start: 20070727
  9. AMOXICILLIN [Concomitant]
     Dosage: 500 MG, UNK
     Dates: start: 20070613
  10. YAZ [Suspect]
     Indication: PRODUCT USED FOR UNKNOWN INDICATION
     Route: 048
  11. CYPROHEPTADINE HCL [Concomitant]
     Dosage: 4 MG, UNK
     Dates: start: 20070616
  12. SULFAMETHOXAZOLE [Concomitant]
     Dosage: UNK
     Dates: start: 20070728

REACTIONS (4)
  - CHOLECYSTITIS CHRONIC [None]
  - PAIN [None]
  - GALLBLADDER DISORDER [None]
  - INJURY [None]
